FAERS Safety Report 16540525 (Version 1)
Quarter: 2019Q3

REPORT INFORMATION
  Report Type: Spontaneous
  Country: US (occurrence: US)
  Receive Date: 20190707
  Receipt Date: 20190707
  Transmission Date: 20191004
  Serious: Yes (Other)
  Sender: FDA-Public Use
  Company Number: None

PATIENT
  Age: 12 Year
  Sex: Male
  Weight: 56.52 kg

DRUGS (2)
  1. ATOMOXETINE. [Suspect]
     Active Substance: ATOMOXETINE HYDROCHLORIDE
     Indication: ANXIETY DISORDER
     Route: 048
     Dates: start: 20170830, end: 20180202
  2. ATOMOXETINE. [Suspect]
     Active Substance: ATOMOXETINE HYDROCHLORIDE
     Indication: IMPULSE-CONTROL DISORDER
     Route: 048
     Dates: start: 20170830, end: 20180202

REACTIONS (7)
  - Product substitution issue [None]
  - Aggression [None]
  - Odynophagia [None]
  - Anxiety [None]
  - Depression [None]
  - Feeling of despair [None]
  - Crying [None]

NARRATIVE: CASE EVENT DATE: 20180208
